FAERS Safety Report 7593113-7 (Version None)
Quarter: 2011Q3

REPORT INFORMATION
  Report Type: 
  Country: None (occurrence: None)
  Receive Date: 20110706
  Receipt Date: 20110623
  Transmission Date: 20111222
  Serious: Yes (Hospitalization)
  Sender: FDA-Public Use
  Company Number: NL-GENENTECH-320298

PATIENT
  Sex: Male
  Weight: 65 kg

DRUGS (8)
  1. RITUXIMAB [Suspect]
     Indication: CHRONIC LYMPHOCYTIC LEUKAEMIA
     Dosage: 690 MG, UNK
     Route: 042
     Dates: start: 20110405
  2. CYTARABINE [Suspect]
     Indication: CHRONIC LYMPHOCYTIC LEUKAEMIA
     Dosage: 7360 MG, UNK
     Route: 042
     Dates: start: 20110407
  3. CYTARABINE [Suspect]
     Dosage: 3680 MG, UNK
     Route: 042
     Dates: start: 20110507
  4. DEXAMETHASONE [Suspect]
     Indication: CHRONIC LYMPHOCYTIC LEUKAEMIA
     Dosage: 40 MG, UNK
     Route: 042
     Dates: start: 20110405
  5. DEXAMETHASONE [Suspect]
     Dosage: 40 MG, UNK
     Route: 042
     Dates: start: 20110506
  6. RITUXIMAB [Suspect]
     Dosage: 690 MG, UNK
     Route: 042
     Dates: start: 20110506
  7. CISPLATIN [Suspect]
     Dosage: 184 MG, UNK
     Route: 042
     Dates: start: 20110506
  8. CISPLATIN [Suspect]
     Indication: CHRONIC LYMPHOCYTIC LEUKAEMIA
     Dosage: 120 MG, UNK
     Route: 042
     Dates: start: 20110405

REACTIONS (2)
  - RENAL FAILURE [None]
  - FEBRILE NEUTROPENIA [None]
